FAERS Safety Report 13208709 (Version 1)
Quarter: 2017Q1

REPORT INFORMATION
  Report Type: Spontaneous
  Country: US (occurrence: US)
  Receive Date: 20170209
  Receipt Date: 20170209
  Transmission Date: 20170428
  Serious: No
  Sender: FDA-Public Use
  Company Number: US-ROCHE-1743868

PATIENT
  Age: 51 Year
  Sex: Female
  Weight: 96.1 kg

DRUGS (1)
  1. XOLAIR [Suspect]
     Active Substance: OMALIZUMAB
     Indication: ASTHMA
     Route: 065
     Dates: start: 20151115, end: 20160418

REACTIONS (2)
  - Ear pain [Unknown]
  - Infection [Unknown]

NARRATIVE: CASE EVENT DATE: 20160418
